FAERS Safety Report 9703646 (Version 2)
Quarter: 2013Q4

REPORT INFORMATION
  Report Type: Spontaneous
  Country: US (occurrence: US)
  Receive Date: 20131122
  Receipt Date: 20131127
  Transmission Date: 20140711
  Serious: No
  Sender: FDA-Public Use
  Company Number: US-PFIZER INC-2013331881

PATIENT
  Age: 74 Year
  Sex: Male

DRUGS (1)
  1. SUTENT [Suspect]
     Dosage: UNK
     Dates: start: 201306

REACTIONS (9)
  - Diarrhoea [Unknown]
  - Hair colour changes [Unknown]
  - Rash macular [Unknown]
  - Oral pain [Unknown]
  - Ageusia [Unknown]
  - Pruritus [Unknown]
  - Musculoskeletal stiffness [Unknown]
  - Sensory loss [Unknown]
  - Swelling face [Unknown]
